FAERS Safety Report 5917168-8 (Version None)
Quarter: 2008Q4

REPORT INFORMATION
  Report Type: 
  Country: None (occurrence: None)
  Receive Date: 20081014
  Receipt Date: 20081003
  Transmission Date: 20090506
  Serious: Yes (Hospitalization, Other)
  Sender: FDA-Public Use
  Company Number: US-ROCHE-583574

PATIENT
  Sex: Female
  Weight: 65.8 kg

DRUGS (4)
  1. CAPECITABINE [Suspect]
     Indication: BREAST CANCER
     Dosage: 1500 MG IN AM AND 1500 MG IN PM
     Route: 048
     Dates: start: 20080617
  2. TYKERB [Concomitant]
  3. VITAMIN B COMPLEX CAP [Concomitant]
  4. ZOMETA [Concomitant]

REACTIONS (6)
  - ACTIVITIES OF DAILY LIVING IMPAIRED [None]
  - ASPIRATION [None]
  - DECUBITUS ULCER [None]
  - DIARRHOEA [None]
  - HEMIPLEGIA [None]
  - ISCHAEMIC STROKE [None]
